FAERS Safety Report 6413895-7 (Version None)
Quarter: 2009Q4

REPORT INFORMATION
  Report Type: 
  Country: None (occurrence: None)
  Receive Date: 20091026
  Receipt Date: 20091021
  Transmission Date: 20100525
  Serious: Yes (Death, Life-Threatening)
  Sender: FDA-Public Use
  Company Number: B0594904A

PATIENT
  Sex: Male
  Weight: 54.6 kg

DRUGS (1)
  1. NELARABINE [Suspect]
     Dosage: 1065MG PER DAY
     Route: 042
     Dates: start: 20090610, end: 20090615

REACTIONS (5)
  - ENCEPHALOPATHY [None]
  - HYPOVENTILATION [None]
  - LEUKOENCEPHALOPATHY [None]
  - NEUROPATHY PERIPHERAL [None]
  - NUCLEAR MAGNETIC RESONANCE IMAGING ABNORMAL [None]
